FAERS Safety Report 7111503-3 (Version None)
Quarter: 2010Q4

REPORT INFORMATION
  Report Type: 
  Country: None (occurrence: None)
  Receive Date: 20101118
  Receipt Date: 20101111
  Transmission Date: 20110411
  Serious: Yes (Other)
  Sender: FDA-Public Use
  Company Number: JP-PFIZER INC-2010145411

PATIENT
  Age: 79 Year
  Sex: Female

DRUGS (5)
  1. LYRICA [Suspect]
     Indication: POST HERPETIC NEURALGIA
     Dosage: 25MG/DAY
     Route: 048
     Dates: start: 20101109, end: 20101109
  2. FAMVIR [Concomitant]
     Indication: HERPES ZOSTER
  3. LANSOPRAZOLE [Concomitant]
     Indication: GASTRIC ULCER
     Dosage: 15MG/DAY
     Route: 048
     Dates: start: 20101105, end: 20101109
  4. SODIUM BICARBONATE [Concomitant]
     Indication: METABOLIC ACIDOSIS
     Dosage: 1.5G/DAY
     Route: 048
     Dates: start: 20101103, end: 20101109
  5. NORVASC [Concomitant]
     Indication: HYPERTENSION
     Dosage: 5MG/DAY
     Route: 048
     Dates: end: 20101109

REACTIONS (3)
  - ALTERED STATE OF CONSCIOUSNESS [None]
  - HYPERURICAEMIA [None]
  - HYPONATRAEMIA [None]
